FAERS Safety Report 7882820-4 (Version None)
Quarter: 2011Q4

REPORT INFORMATION
  Report Type: 
  Country: None (occurrence: None)
  Receive Date: 20111101
  Receipt Date: 20110621
  Transmission Date: 20120403
  Serious: No
  Sender: FDA-Public Use
  Company Number: US-AMGEN-USASP2011018546

PATIENT
  Age: 57 Year
  Sex: Female
  Weight: 67.937 kg

DRUGS (4)
  1. PREDNISONE [Concomitant]
     Dosage: 4 MG, UNK
     Dates: start: 20110216
  2. ENBREL [Suspect]
     Indication: RHEUMATOID ARTHRITIS
     Dosage: 50 MG, QWK
     Dates: start: 20080101
  3. ARAVA [Concomitant]
     Dosage: 20 MG, UNK
     Dates: start: 20090407
  4. ZYRTEC [Concomitant]
     Dosage: 10 MG, UNK
     Dates: start: 20110216

REACTIONS (10)
  - INJECTION SITE SWELLING [None]
  - ABDOMINAL DISCOMFORT [None]
  - ABDOMINAL PAIN LOWER [None]
  - FATIGUE [None]
  - INJECTION SITE REACTION [None]
  - INJECTION SITE ERYTHEMA [None]
  - INJECTION SITE PRURITUS [None]
  - DIARRHOEA [None]
  - SOMNOLENCE [None]
  - ASTHENIA [None]
